FAERS Safety Report 25894759 (Version 2)
Quarter: 2025Q4

REPORT INFORMATION
  Report Type: Report from Study
  Country: CA (occurrence: CA)
  Receive Date: 20251008
  Receipt Date: 20251014
  Transmission Date: 20260117
  Serious: Yes (Disabling, Other)
  Sender: CELLTRION
  Company Number: CA-CELLTRION INC.-2025CA030189

PATIENT

DRUGS (2)
  1. OMALIZUMAB [Suspect]
     Active Substance: OMALIZUMAB
     Indication: Chronic spontaneous urticaria
     Dosage: MAINTENANCE - 300MG SC EVERY 4 WEEKS
     Route: 058
     Dates: start: 20250709
  2. OMALIZUMAB [Suspect]
     Active Substance: OMALIZUMAB
     Dosage: 300MG SC Q4W
     Route: 058
     Dates: start: 20250910

REACTIONS (9)
  - Condition aggravated [Unknown]
  - Hypersensitivity [Unknown]
  - Vomiting [Unknown]
  - Blood pressure decreased [Unknown]
  - Presyncope [Unknown]
  - Gastroenteritis viral [Recovered/Resolved]
  - Dizziness [Recovered/Resolved]
  - Weight increased [Unknown]
  - Intentional dose omission [Unknown]
